FAERS Safety Report 20885152 (Version 1)
Quarter: 2022Q2

REPORT INFORMATION
  Report Type: Spontaneous
  Country: US (occurrence: None)
  Receive Date: 20220527
  Receipt Date: 20220527
  Transmission Date: 20220720
  Serious: Yes (Other)
  Sender: FDA-Public Use
  Company Number: None

PATIENT
  Age: 80 Year
  Sex: Female
  Weight: 58.05 kg

DRUGS (9)
  1. MISOPROSTOL [Suspect]
     Active Substance: MISOPROSTOL
     Indication: Biopsy uterus
     Dosage: OTHER QUANTITY : 2 TABLET(S);?
     Route: 048
     Dates: start: 20220525, end: 20220525
  2. NEXLIZET [Concomitant]
     Active Substance: BEMPEDOIC ACID\EZETIMIBE
  3. TOPROL XL [Concomitant]
  4. MAXALT [Concomitant]
     Active Substance: RIZATRIPTAN BENZOATE
  5. CLONAZEPAM [Concomitant]
     Active Substance: CLONAZEPAM
  6. VITAMIN D3 [Concomitant]
     Active Substance: CHOLECALCIFEROL
  7. LATANOPROST [Concomitant]
     Active Substance: LATANOPROST
  8. Timolol Maleate Ophthalmic solution [Concomitant]
  9. Flaxseed Oil capsule [Concomitant]

REACTIONS (3)
  - Tremor [None]
  - Chills [None]
  - Diarrhoea [None]

NARRATIVE: CASE EVENT DATE: 20220525
